FAERS Safety Report 19230698 (Version 1)
Quarter: 2021Q2

REPORT INFORMATION
  Report Type: Spontaneous
  Country: US (occurrence: US)
  Receive Date: 20210507
  Receipt Date: 20210507
  Transmission Date: 20210717
  Serious: Yes (Other)
  Sender: FDA-Public Use
  Company Number: None

PATIENT
  Sex: Male
  Weight: 82.9 kg

DRUGS (2)
  1. LEVETRACETAM 100MG/ML [Suspect]
     Active Substance: LEVETIRACETAM
  2. LEVETRACETAM 100MG/ML [Suspect]
     Active Substance: LEVETIRACETAM
     Indication: EPILEPSY
     Route: 048
     Dates: start: 202010, end: 202103

REACTIONS (1)
  - Seizure [None]
